FAERS Safety Report 16584216 (Version 1)
Quarter: 2019Q3

REPORT INFORMATION
  Report Type: Spontaneous
  Country: US (occurrence: US)
  Receive Date: 20190717
  Receipt Date: 20190717
  Transmission Date: 20191004
  Serious: Yes (Hospitalization, Other)
  Sender: FDA-Public Use
  Company Number: US-TEVA-2019-US-1076916

PATIENT
  Sex: Male

DRUGS (4)
  1. GLYBURIDE TABLETS [Suspect]
     Active Substance: GLYBURIDE
     Indication: DIABETES MELLITUS
     Route: 065
     Dates: start: 2014
  2. GLYBURIDE TABLETS [Suspect]
     Active Substance: GLYBURIDE
     Route: 065
     Dates: start: 2014
  3. MINOCYCLINE [Suspect]
     Active Substance: MINOCYCLINE HYDROCHLORIDE
     Route: 065
  4. GLYBURIDE TABLETS [Suspect]
     Active Substance: GLYBURIDE
     Route: 065
     Dates: start: 2014

REACTIONS (9)
  - Oesophagitis [Unknown]
  - Arthropathy [Unknown]
  - Dental plaque [Unknown]
  - Nerve injury [Unknown]
  - Gingival bleeding [Unknown]
  - Burning sensation [Unknown]
  - Blood testosterone decreased [Unknown]
  - Confusional state [Unknown]
  - Staphylococcal infection [Unknown]

NARRATIVE: CASE EVENT DATE: 2014
